FAERS Safety Report 16834825 (Version 2)
Quarter: 2019Q4

REPORT INFORMATION
  Report Type: Spontaneous
  Country: US (occurrence: US)
  Receive Date: 20190920
  Receipt Date: 20191112
  Transmission Date: 20200122
  Serious: No
  Sender: FDA-Public Use
  Company Number: PHEH2019US038747

PATIENT
  Sex: Male

DRUGS (1)
  1. GLATOPA [Suspect]
     Active Substance: GLATIRAMER ACETATE
     Indication: MULTIPLE SCLEROSIS
     Dosage: 40 MG, TID
     Route: 058

REACTIONS (4)
  - Therapeutic product effect incomplete [Unknown]
  - Injection site pain [Unknown]
  - Burning sensation [Unknown]
  - Muscle spasms [Not Recovered/Not Resolved]
